FAERS Safety Report 21550219 (Version 1)
Quarter: 2022Q4

REPORT INFORMATION
  Report Type: Spontaneous
  Country: KW (occurrence: KW)
  Receive Date: 20221103
  Receipt Date: 20221103
  Transmission Date: 20230112
  Serious: Yes (Hospitalization)
  Sender: FDA-Public Use
  Company Number: KW-SLATE RUN PHARMACEUTICALS-22KW001405

PATIENT

DRUGS (5)
  1. ESOMEPRAZOLE MAGNESIUM [Interacting]
     Active Substance: ESOMEPRAZOLE MAGNESIUM
     Indication: Abdominal pain upper
     Dosage: 40 MILLIGRAM
  2. ESOMEPRAZOLE MAGNESIUM [Interacting]
     Active Substance: ESOMEPRAZOLE MAGNESIUM
     Dosage: 20 MILLIGRAM BEFORE MEALS
  3. ESCITALOPRAM [Interacting]
     Active Substance: ESCITALOPRAM OXALATE
     Indication: Obsessive-compulsive disorder
     Dosage: 30 MILLIGRAM, QD
  4. ESCITALOPRAM [Interacting]
     Active Substance: ESCITALOPRAM OXALATE
     Dosage: 20 MILLIGRAM, QD
  5. ESCITALOPRAM [Interacting]
     Active Substance: ESCITALOPRAM OXALATE
     Dosage: 5 MILLIGRAM, QD AFTER MEALS

REACTIONS (20)
  - Serotonin syndrome [Unknown]
  - Drug interaction [Unknown]
  - Disorientation [Unknown]
  - Muscle rigidity [Unknown]
  - Pyrexia [Unknown]
  - Extensor plantar response [Unknown]
  - Hyperreflexia [Unknown]
  - Clonus [Unknown]
  - Ventricular extrasystoles [Unknown]
  - Tachypnoea [Unknown]
  - Mydriasis [Unknown]
  - Gastrointestinal sounds abnormal [Unknown]
  - Chills [Unknown]
  - Depressed level of consciousness [Unknown]
  - Agitation [Unknown]
  - Confusional state [Unknown]
  - Hyperhidrosis [Unknown]
  - Flushing [Unknown]
  - Vomiting [Unknown]
  - Sinus tachycardia [Unknown]
